FAERS Safety Report 6583548-3 (Version None)
Quarter: 2010Q1

REPORT INFORMATION
  Report Type: 
  Country: None (occurrence: None)
  Receive Date: 20100216
  Receipt Date: 20100205
  Transmission Date: 20100710
  Serious: Yes (Life-Threatening, Hospitalization)
  Sender: FDA-Public Use
  Company Number: JP-WYE-H12786309

PATIENT
  Sex: Male
  Weight: 59 kg

DRUGS (4)
  1. ZOSYN [Suspect]
     Indication: PYELONEPHRITIS
     Route: 041
     Dates: start: 20091215, end: 20091221
  2. CEFOPERAZONE SODIUM/SULBACTAM SODIUM [Concomitant]
     Indication: PYELONEPHRITIS
     Route: 041
     Dates: start: 20091204, end: 20091207
  3. MEROPENEM [Concomitant]
     Indication: PYELONEPHRITIS
     Dosage: 1.0 - 1.5 G/DAY
     Route: 041
     Dates: start: 20091208, end: 20091214
  4. FAMOTIDINE [Concomitant]
     Indication: GASTRITIS
     Route: 041
     Dates: start: 20091204, end: 20091208

REACTIONS (8)
  - ALANINE AMINOTRANSFERASE INCREASED [None]
  - ASPARTATE AMINOTRANSFERASE INCREASED [None]
  - BLOOD ALKALINE PHOSPHATASE INCREASED [None]
  - BLOOD BILIRUBIN INCREASED [None]
  - BLOOD LACTATE DEHYDROGENASE INCREASED [None]
  - GAMMA-GLUTAMYLTRANSFERASE INCREASED [None]
  - HEPATIC FUNCTION ABNORMAL [None]
  - JAUNDICE [None]
